FAERS Safety Report 4513654-6 (Version None)
Quarter: 2004Q4

REPORT INFORMATION
  Report Type: 
  Country: None (occurrence: None)
  Receive Date: 20041130
  Receipt Date: 20040819
  Transmission Date: 20050328
  Serious: No
  Sender: FDA-Public Use
  Company Number: US-GLAXOSMITHKLINE-A0522801A

PATIENT
  Age: 27 Year
  Sex: Female

DRUGS (6)
  1. WELLBUTRIN XL [Suspect]
     Dosage: 150MG PER DAY
     Route: 048
     Dates: start: 20040602
  2. LAMICTAL [Concomitant]
     Route: 048
     Dates: start: 20030607
  3. LEXAPRO [Concomitant]
     Route: 048
     Dates: start: 20030420
  4. DEPAKOTE ER [Concomitant]
     Route: 048
     Dates: start: 20030420
  5. GEODON [Concomitant]
     Route: 048
     Dates: start: 20040121, end: 20040822
  6. LORAZEPAM [Concomitant]
     Dosage: .5U AS REQUIRED
     Route: 048
     Dates: start: 20040430

REACTIONS (3)
  - EYE MOVEMENT DISORDER [None]
  - MASTICATION DISORDER [None]
  - TARDIVE DYSKINESIA [None]
